FAERS Safety Report 11833395 (Version 4)
Quarter: 2016Q1

REPORT INFORMATION
  Report Type: Spontaneous
  Country: IE (occurrence: IE)
  Receive Date: 20151214
  Receipt Date: 20160212
  Transmission Date: 20160525
  Serious: Yes (Other)
  Sender: FDA-Public Use
  Company Number: IE-JNJFOC-20151203838

PATIENT
  Age: 61 Year
  Sex: Female
  Weight: 73 kg

DRUGS (3)
  1. ACITRETIN. [Concomitant]
     Active Substance: ACITRETIN
     Route: 065
  2. STELARA [Suspect]
     Active Substance: USTEKINUMAB
     Indication: PSORIASIS
     Dosage: 45 MG AT WEEK 0, WEEK 2, AND THEN 12 WEEKLY
     Route: 058
     Dates: start: 20150424
  3. UCERAX [Concomitant]
     Route: 065

REACTIONS (3)
  - Kidney infection [Not Recovered/Not Resolved]
  - Urinary tract infection [Recovered/Resolved]
  - Anxiety [Unknown]

NARRATIVE: CASE EVENT DATE: 201511
